FAERS Safety Report 4981586-5 (Version None)
Quarter: 2006Q2

REPORT INFORMATION
  Report Type: 
  Country: None (occurrence: None)
  Receive Date: 20060425
  Receipt Date: 20060412
  Transmission Date: 20061013
  Serious: Yes (Other)
  Sender: FDA-Public Use
  Company Number: PHBS2006JP05801

PATIENT
  Age: 75 Year
  Sex: Male

DRUGS (2)
  1. GLEEVEC [Suspect]
     Indication: CHRONIC MYELOID LEUKAEMIA
     Dosage: 200 MG/D
     Route: 048
     Dates: start: 20051203, end: 20060215
  2. LASIX [Concomitant]
     Dosage: 20 MG/D
     Route: 048
     Dates: start: 20051201

REACTIONS (4)
  - BLOOD CREATININE INCREASED [None]
  - BLOOD URINE PRESENT [None]
  - GLOMERULONEPHRITIS [None]
  - PROTEIN URINE PRESENT [None]
